FAERS Safety Report 19162335 (Version 1)
Quarter: 2021Q2

REPORT INFORMATION
  Report Type: Spontaneous
  Country: US (occurrence: US)
  Receive Date: 20210419
  Receipt Date: 20210419
  Transmission Date: 20210717
  Serious: Yes (Other)
  Sender: FDA-Public Use
  Company Number: None

PATIENT
  Age: 92 Year
  Sex: Male

DRUGS (16)
  1. CALCITRIOL. [Concomitant]
     Active Substance: CALCITRIOL
  2. IRON [Concomitant]
     Active Substance: IRON
  3. OMEPRAZOLE. [Concomitant]
     Active Substance: OMEPRAZOLE
  4. TAMSULOSIN [Concomitant]
     Active Substance: TAMSULOSIN
  5. PREGABALIN. [Concomitant]
     Active Substance: PREGABALIN
  6. NOVOLOG [Concomitant]
     Active Substance: INSULIN ASPART
  7. METOPROLOL. [Concomitant]
     Active Substance: METOPROLOL
  8. FEBUXOSTAT. [Concomitant]
     Active Substance: FEBUXOSTAT
  9. CLARITIN [Concomitant]
     Active Substance: LORATADINE
  10. PROLIA [Suspect]
     Active Substance: DENOSUMAB
     Indication: OSTEOPOROSIS
     Dosage: ?          QUANTITY:1 DF DOSAGE FORM;OTHER FREQUENCY:EVERY 6 MONTHS;?
     Route: 030
     Dates: start: 20210407, end: 20210407
  11. AMLODIPINE [Concomitant]
     Active Substance: AMLODIPINE BESYLATE
  12. FUROSEMIDE. [Concomitant]
     Active Substance: FUROSEMIDE
  13. POTASSIUM [Concomitant]
     Active Substance: POTASSIUM
  14. MULTIVITAMIN [Concomitant]
     Active Substance: VITAMINS
  15. ATORVASTATIN [Concomitant]
     Active Substance: ATORVASTATIN
  16. LANTUS [Concomitant]
     Active Substance: INSULIN GLARGINE

REACTIONS (3)
  - Neck pain [None]
  - Headache [None]
  - Tremor [None]

NARRATIVE: CASE EVENT DATE: 20210416
